FAERS Safety Report 9500191 (Version 2)
Quarter: 2013Q3

REPORT INFORMATION
  Report Type: Spontaneous
  Country: DE (occurrence: DE)
  Receive Date: 20130905
  Receipt Date: 20130905
  Transmission Date: 20140515
  Serious: Yes (Other)
  Sender: FDA-Public Use
  Company Number: PHHY2013DE037481

PATIENT
  Sex: Female

DRUGS (2)
  1. DIOVAN PROTECT [Suspect]
     Indication: HYPERTENSION
     Dosage: 40 MG, TID
     Route: 048
     Dates: start: 2006
  2. DIOVAN PROTECT [Suspect]
     Dosage: 40 MG, BID
     Route: 048

REACTIONS (5)
  - Intraocular pressure increased [Unknown]
  - Visual impairment [Not Recovered/Not Resolved]
  - Blood pressure fluctuation [Not Recovered/Not Resolved]
  - Dizziness [Not Recovered/Not Resolved]
  - Asthenia [Not Recovered/Not Resolved]
